FAERS Safety Report 17803535 (Version 1)
Quarter: 2020Q2

REPORT INFORMATION
  Report Type: Spontaneous
  Country: AT (occurrence: AT)
  Receive Date: 20200519
  Receipt Date: 20200519
  Transmission Date: 20200714
  Serious: Yes (Other)
  Sender: FDA-Public Use
  Company Number: AT-PFIZER INC-2020189709

PATIENT

DRUGS (1)
  1. DOSTINEX [Suspect]
     Active Substance: CABERGOLINE
     Indication: HYPERPROLACTINAEMIA
     Dosage: 0.5 DF WEEKLY(0.5 TAB WEEKLY AT START EVERY 10 DAYS WHERE APPROPRIATE,PAUSED WEEK 4+5 TO WEEK 8+2
     Route: 064
     Dates: start: 201709, end: 201807

REACTIONS (8)
  - Cerebral haemorrhage foetal [Unknown]
  - Maternal exposure during pregnancy [Unknown]
  - Pyramidal tract syndrome [Unknown]
  - Intraventricular haemorrhage neonatal [Unknown]
  - Porencephaly [Unknown]
  - Brain oedema [Unknown]
  - Cerebral infarction [Unknown]
  - Cerebral infarction foetal [Unknown]

NARRATIVE: CASE EVENT DATE: 2018
